FAERS Safety Report 4719523-0 (Version None)
Quarter: 2005Q3

REPORT INFORMATION
  Report Type: 
  Country: None (occurrence: None)
  Receive Date: 20050719
  Receipt Date: 20050719
  Transmission Date: 20060218
  Serious: Yes (Hospitalization)
  Sender: FDA-Public Use
  Company Number: None

PATIENT
  Sex: Male

DRUGS (7)
  1. TERAZOSIN 2 MG [Suspect]
     Indication: BENIGN PROSTATIC HYPERPLASIA
     Dosage: 4 MG BID ORAL
     Route: 048
  2. APAP TAB [Concomitant]
  3. ASPIRIN [Concomitant]
  4. FINASTERIDE [Concomitant]
  5. GATIFLOXACIN [Concomitant]
  6. METIPRANOLOL OPHTHALMIC [Concomitant]
  7. TRAVOPROST [Concomitant]

REACTIONS (1)
  - DIZZINESS [None]
